FAERS Safety Report 21174497 (Version 1)
Quarter: 2022Q3

REPORT INFORMATION
  Report Type: Spontaneous
  Country: JP (occurrence: JP)
  Receive Date: 20220805
  Receipt Date: 20220805
  Transmission Date: 20221027
  Serious: Yes (Death, Other)
  Sender: FDA-Public Use
  Company Number: JP-STRIDES ARCOLAB LIMITED-2022SP009850

PATIENT
  Age: 52 Year
  Sex: Male

DRUGS (2)
  1. MYCOPHENOLATE MOFETIL [Suspect]
     Active Substance: MYCOPHENOLATE MOFETIL
     Indication: Prophylaxis against graft versus host disease
     Dosage: 500 MILLIGRAM, TID (3 TIMES DAILY)
     Route: 065
     Dates: start: 201611
  2. TACROLIMUS [Suspect]
     Active Substance: TACROLIMUS
     Indication: Prophylaxis against graft versus host disease
     Dosage: 0.03 MILLIGRAM/KILOGRAM (CONTINUOUS INFUSION)
     Route: 050

REACTIONS (3)
  - Post transplant lymphoproliferative disorder [Fatal]
  - Graft versus host disease [Unknown]
  - Epstein-Barr viraemia [Unknown]
